FAERS Safety Report 15138555 (Version 1)
Quarter: 2018Q3

REPORT INFORMATION
  Report Type: Report from Study
  Country: JP (occurrence: JP)
  Receive Date: 20180713
  Receipt Date: 20180713
  Transmission Date: 20181010
  Serious: No
  Sender: FDA-Public Use
  Company Number: JP-BIOVERATIV-2018BV000395

PATIENT
  Age: 9 Year
  Sex: Female
  Weight: 23 kg

DRUGS (14)
  1. ALPROLIX [Suspect]
     Active Substance: EFTRENONACOG ALFA
     Dosage: ADDITIONAL TREATMENT, ONCE
     Route: 042
     Dates: start: 20160711, end: 20160711
  2. ALPROLIX [Suspect]
     Active Substance: EFTRENONACOG ALFA
     Dosage: ADDITIONAL TREATMENT, ONCE
     Route: 042
     Dates: start: 20160717, end: 20160717
  3. ALPROLIX [Suspect]
     Active Substance: EFTRENONACOG ALFA
     Indication: FACTOR IX DEFICIENCY
     Dosage: ROUTINE TREATMENT
     Route: 042
     Dates: start: 20141204, end: 20150212
  4. ALPROLIX [Suspect]
     Active Substance: EFTRENONACOG ALFA
     Dosage: ADDITIONAL TREATMENT, ONCE
     Route: 042
     Dates: start: 20150928, end: 20150928
  5. ALPROLIX [Suspect]
     Active Substance: EFTRENONACOG ALFA
     Dosage: ADDITIONAL TREATMENT, 3 TIMES
     Route: 042
     Dates: start: 20160506, end: 20160510
  6. ALPROLIX [Suspect]
     Active Substance: EFTRENONACOG ALFA
     Dosage: ADDITIONAL TREATMENT, ONCE
     Route: 042
     Dates: start: 20161113, end: 20161113
  7. TRANSAMIN [Concomitant]
     Active Substance: TRANEXAMIC ACID
     Indication: GINGIVAL BLEEDING
     Route: 065
     Dates: start: 20150831, end: 20150903
  8. ALPROLIX [Suspect]
     Active Substance: EFTRENONACOG ALFA
     Dosage: ROUTINE TREATMENT
     Route: 042
     Dates: start: 20160421
  9. ALPROLIX [Suspect]
     Active Substance: EFTRENONACOG ALFA
     Dosage: ADDITIONAL TREATMENT, ONCE
     Route: 042
     Dates: start: 20150302, end: 20150302
  10. TRANSAMIN [Concomitant]
     Active Substance: TRANEXAMIC ACID
     Indication: EPISTAXIS
     Route: 065
     Dates: start: 20160818, end: 20160825
  11. BENEFIX [Concomitant]
     Active Substance: COAGULATION FACTOR IX RECOMBINANT HUMAN\ISOPROPYL ALCOHOL
     Indication: HAEMARTHROSIS
     Route: 065
     Dates: start: 20150109, end: 20150109
  12. ALPROLIX [Suspect]
     Active Substance: EFTRENONACOG ALFA
     Dosage: ADDITIONAL TREATMENT, TWICE
     Route: 042
     Dates: start: 20150902, end: 20150903
  13. ALPROLIX [Suspect]
     Active Substance: EFTRENONACOG ALFA
     Dosage: ROUTINE TREATMENT
     Route: 042
     Dates: start: 20150219, end: 20160414
  14. ALPROLIX [Suspect]
     Active Substance: EFTRENONACOG ALFA
     Dosage: ADDITIONAL TREATMENT, ONCE
     Route: 042
     Dates: start: 20160628, end: 20160628

REACTIONS (2)
  - Tooth extraction [Recovered/Resolved]
  - Haemarthrosis [Recovered/Resolved]

NARRATIVE: CASE EVENT DATE: 20160227
